FAERS Safety Report 11505572 (Version 16)
Quarter: 2018Q4

REPORT INFORMATION
  Report Type: Report from Study
  Country: DE (occurrence: DE)
  Receive Date: 20150915
  Receipt Date: 20181009
  Transmission Date: 20190204
  Serious: Yes (Hospitalization, Other)
  Sender: FDA-Public Use
  Company Number: DE-ROCHE-1633940

PATIENT
  Age: 15 Year
  Sex: Male
  Weight: 106 kg

DRUGS (18)
  1. FOLSAURE [Concomitant]
     Active Substance: FOLIC ACID
     Indication: STILL^S DISEASE
     Route: 048
     Dates: start: 20141204
  2. TOPIRAMAT [Concomitant]
     Active Substance: TOPIRAMATE
     Route: 048
  3. DICLOFENAC [Suspect]
     Active Substance: DICLOFENAC
     Indication: STILL^S DISEASE
     Dosage: DAILY DOSE: 100 MG MILLGRAM(S) EVERY DAYS
     Route: 048
     Dates: start: 20141217, end: 20150113
  4. TOCILIZUMAB. [Suspect]
     Active Substance: TOCILIZUMAB
     Route: 042
     Dates: start: 20141217
  5. ETORICOXIB. [Concomitant]
     Active Substance: ETORICOXIB
     Indication: STILL^S DISEASE
     Route: 048
     Dates: start: 20160403
  6. TOPIRAMAT [Concomitant]
     Active Substance: TOPIRAMATE
     Indication: EPILEPSY
     Route: 048
  7. ARCOXIA [Concomitant]
     Active Substance: ETORICOXIB
     Indication: STILL^S DISEASE
     Route: 065
  8. FOLIC ACID. [Concomitant]
     Active Substance: FOLIC ACID
     Indication: PRODUCT USED FOR UNKNOWN INDICATION
     Route: 048
     Dates: start: 20141204
  9. PREDNISON [Suspect]
     Active Substance: PREDNISONE
     Indication: STILL^S DISEASE
     Route: 065
     Dates: start: 20150428
  10. TOCILIZUMAB. [Suspect]
     Active Substance: TOCILIZUMAB
     Indication: STILL^S DISEASE
     Route: 042
     Dates: start: 20150428
  11. PANTOPRAZOL [Suspect]
     Active Substance: PANTOPRAZOLE SODIUM
     Indication: PROPHYLAXIS
     Route: 065
     Dates: start: 20150401
  12. METHOTREXAT [Suspect]
     Active Substance: METHOTREXATE
     Indication: STILL^S DISEASE
     Route: 048
     Dates: start: 20141204
  13. OXCARBAZEPIN [Concomitant]
     Active Substance: OXCARBAZEPINE
     Route: 065
     Dates: start: 20160915
  14. PANTOPRAZOL [Suspect]
     Active Substance: PANTOPRAZOLE SODIUM
     Indication: STILL^S DISEASE
     Route: 065
     Dates: start: 20141204
  15. VOLTAREN [Suspect]
     Active Substance: DICLOFENAC SODIUM
     Indication: STILL^S DISEASE
     Dosage: CUMULATATIVE DOSE TO FIRST REACTION:2800 MG
     Route: 048
     Dates: start: 20141217, end: 20150113
  16. OXCARBAZEPIN [Concomitant]
     Active Substance: OXCARBAZEPINE
     Indication: EPILEPSY
     Route: 048
     Dates: start: 20160908
  17. PERAMPANEL [Concomitant]
     Active Substance: PERAMPANEL
     Indication: STILL^S DISEASE
     Route: 048
     Dates: start: 20160303
  18. OMEPRAZOL [Concomitant]
     Active Substance: OMEPRAZOLE
     Indication: STILL^S DISEASE
     Route: 048
     Dates: start: 20141217

REACTIONS (10)
  - Craniocerebral injury [Unknown]
  - Epilepsy [Recovered/Resolved]
  - Seizure [Recovered/Resolved]
  - Sinusitis [Recovered/Resolved]
  - Tonsillitis [Unknown]
  - Pneumonia aspiration [Recovered/Resolved]
  - Otitis media [Recovered/Resolved]
  - Epilepsy [Recovered/Resolved]
  - Hand fracture [Unknown]
  - Fall [Unknown]

NARRATIVE: CASE EVENT DATE: 20150430
